FAERS Safety Report 24573161 (Version 1)
Quarter: 2024Q4

REPORT INFORMATION
  Report Type: Report from Study
  Country: US (occurrence: US)
  Receive Date: 20241101
  Receipt Date: 20241101
  Transmission Date: 20250114
  Serious: Yes (Other)
  Sender: ALEXION PHARMACEUTICALS
  Company Number: US-AstraZeneca-CH-00735049A

PATIENT

DRUGS (2)
  1. ALBUTEROL\BUDESONIDE [Suspect]
     Active Substance: ALBUTEROL\BUDESONIDE
  2. ALBUTEROL\BUDESONIDE [Suspect]
     Active Substance: ALBUTEROL\BUDESONIDE

REACTIONS (4)
  - Colon cancer [Unknown]
  - Stress [Unknown]
  - Incorrect dose administered [Unknown]
  - Malaise [Unknown]
